FAERS Safety Report 6144776-4 (Version None)
Quarter: 2009Q2

REPORT INFORMATION
  Report Type: 
  Country: None (occurrence: None)
  Receive Date: 20090401
  Receipt Date: 20090401
  Transmission Date: 20091009
  Serious: No
  Sender: FDA-Public Use
  Company Number: None

PATIENT
  Sex: Male
  Weight: 78.86 kg

DRUGS (1)
  1. ALFUZOSIN HCL [Suspect]
     Dosage: 10MG TAB SR 24H 10MG QD ORAL
     Route: 048
     Dates: start: 20090106, end: 20090331

REACTIONS (2)
  - CHILLS [None]
  - PYREXIA [None]
